FAERS Safety Report 19168192 (Version 1)
Quarter: 2021Q2

REPORT INFORMATION
  Report Type: Spontaneous
  Country: DE (occurrence: DE)
  Receive Date: 20210422
  Receipt Date: 20210422
  Transmission Date: 20210717
  Serious: Yes (Hospitalization)
  Sender: FDA-Public Use
  Company Number: DE-TEVA-2021-DE-1902922

PATIENT
  Age: 84 Year
  Sex: Female
  Weight: 62 kg

DRUGS (9)
  1. TORASEMID [Concomitant]
     Active Substance: TORSEMIDE
     Dosage: 10 MILLIGRAM DAILY; 1?0?0?0
  2. NITRENDIPIN [Concomitant]
     Active Substance: NITRENDIPINE
     Dosage: 1 DOSAGE FORMS DAILY; 20 MG, 0.5?0?0.5?0
  3. FERRO SANOL DUODENAL 100MG HARTKAPSELN [Concomitant]
     Dosage: 100 MILLIGRAM DAILY; SINCE 04022021 ,1?0?0?0
  4. VIGANTOLETTEN [Concomitant]
     Active Substance: CHOLECALCIFEROL
     Dosage: 2000 IU / EVERY OTHER DAY, 1?0?0?0
  5. ASS 100 [Suspect]
     Active Substance: ASPIRIN
     Dosage: 100 MILLIGRAM DAILY; 0?1?0?0
  6. METAMIZOL [Concomitant]
     Active Substance: METAMIZOLE SODIUM
     Dosage: 1500 MILLIGRAM DAILY; 1?1?1?0
  7. MORPHIN [Suspect]
     Active Substance: MORPHINE
     Dosage: 90 MILLIGRAM DAILY; 1?1?1?0
  8. AMINEURIN 25MG [Concomitant]
     Dosage: 25 MILLIGRAM DAILY; 0?0?1?0
  9. VALSARTAN. [Concomitant]
     Active Substance: VALSARTAN
     Dosage: 160 MILLIGRAM DAILY; 1?0?1?0

REACTIONS (6)
  - General physical health deterioration [Unknown]
  - Tachycardia [Unknown]
  - Dizziness [Unknown]
  - Pallor [Unknown]
  - Extra dose administered [Unknown]
  - Anaemia [Unknown]

NARRATIVE: CASE EVENT DATE: 20210205
